FAERS Safety Report 9105859 (Version 2)
Quarter: 2013Q1

REPORT INFORMATION
  Report Type: Spontaneous
  Country: JP (occurrence: JP)
  Receive Date: 20130221
  Receipt Date: 20130313
  Transmission Date: 20140127
  Serious: Yes (Death, Hospitalization, Other)
  Sender: FDA-Public Use
  Company Number: JP-B.I. PHARMACEUTICALS,INC./RIDGEFIELD-2012-BP-26894NB

PATIENT
  Age: 65 Year
  Sex: Female
  Weight: 50 kg

DRUGS (8)
  1. PRAZAXA [Suspect]
     Indication: ANTICOAGULANT THERAPY
     Dosage: 300 MG
     Route: 048
     Dates: start: 20120723
  2. PRAZAXA [Suspect]
     Dosage: 220 MG
     Route: 048
     Dates: start: 20120909
  3. ARTIST [Concomitant]
     Indication: CARDIOPLEGIA
     Dosage: 5 MG
     Route: 048
     Dates: start: 20120804
  4. TAKEPRON [Concomitant]
     Indication: GASTRITIS PROPHYLAXIS
     Dosage: 15 MG
     Route: 048
     Dates: start: 20120728
  5. ALOSITOL [Concomitant]
     Indication: HYPERURICAEMIA
     Dosage: 100 MG
     Route: 048
     Dates: start: 20120728
  6. LASIX [Concomitant]
     Indication: DIURETIC THERAPY
     Dosage: 20 MG
     Route: 048
     Dates: start: 20120724
  7. ALDACTONE A [Concomitant]
     Indication: DIURETIC THERAPY
     Dosage: 25 MG
     Route: 048
     Dates: start: 20120724
  8. DIGOSIN [Concomitant]
     Indication: HEART RATE IRREGULAR
     Dosage: 0.25 MG
     Route: 048
     Dates: start: 20120724

REACTIONS (3)
  - Brain stem syndrome [Fatal]
  - Cerebellar haemorrhage [Fatal]
  - Activated partial thromboplastin time prolonged [Recovered/Resolved]
